FAERS Safety Report 19190722 (Version 3)
Quarter: 2022Q1

REPORT INFORMATION
  Report Type: Report from Study
  Country: EG (occurrence: EG)
  Receive Date: 20210428
  Receipt Date: 20220323
  Transmission Date: 20220423
  Serious: Yes (Other)
  Sender: FDA-Public Use
  Company Number: NVSC2021EG093700

PATIENT
  Age: 36 Year
  Sex: Male

DRUGS (7)
  1. GILENYA [Suspect]
     Active Substance: FINGOLIMOD HYDROCHLORIDE
     Indication: Multiple sclerosis
     Dosage: 0.5 MG, QD
     Route: 048
     Dates: start: 20201006
  2. GILENYA [Suspect]
     Active Substance: FINGOLIMOD HYDROCHLORIDE
     Dosage: 0.5 MG, QD
     Route: 048
     Dates: start: 202012
  3. BENFOTIAMINE\CYANOCOBALAMIN\PYRIDOXINE HYDROCHLORIDE [Concomitant]
     Active Substance: BENFOTIAMINE\CYANOCOBALAMIN\PYRIDOXINE HYDROCHLORIDE
     Indication: Nerve degeneration
     Dosage: 1 DF, BID
     Route: 048
     Dates: start: 20201006
  4. BENFOTIAMINE\CYANOCOBALAMIN\PYRIDOXINE HYDROCHLORIDE [Concomitant]
     Active Substance: BENFOTIAMINE\CYANOCOBALAMIN\PYRIDOXINE HYDROCHLORIDE
     Indication: Vitamin supplementation
     Dosage: 1 DOSAGE FORM, QD
     Route: 048
     Dates: start: 202201
  5. OMEGA 3 [Concomitant]
     Active Substance: CAPSAICIN
     Indication: Antioxidant therapy
     Dosage: 1 DF, BID
     Route: 048
     Dates: start: 20201006
  6. SELENIUM ACE [Concomitant]
     Indication: Antioxidant therapy
     Dosage: 1 DF, QD
     Route: 048
     Dates: start: 20201006
  7. BIONAL [Concomitant]
     Indication: Liver disorder
     Dosage: 1 DF, TID
     Route: 065
     Dates: start: 20210914

REACTIONS (9)
  - Hepatic enzyme increased [Unknown]
  - Limb discomfort [Not Recovered/Not Resolved]
  - Neck pain [Recovering/Resolving]
  - Urinary incontinence [Not Recovered/Not Resolved]
  - Balance disorder [Not Recovered/Not Resolved]
  - Erectile dysfunction [Not Recovered/Not Resolved]
  - Fatigue [Not Recovered/Not Resolved]
  - Back pain [Recovering/Resolving]
  - Myalgia [Not Recovered/Not Resolved]

NARRATIVE: CASE EVENT DATE: 20210401
